FAERS Safety Report 17163500 (Version 1)
Quarter: 2019Q4

REPORT INFORMATION
  Report Type: Spontaneous
  Country: FR (occurrence: FR)
  Receive Date: 20191217
  Receipt Date: 20191217
  Transmission Date: 20200122
  Serious: Yes (Disabling)
  Sender: FDA-Public Use
  Company Number: FR-ABBVIE-19K-056-3195315-00

PATIENT
  Age: 38 Year
  Sex: Male
  Weight: 82 kg

DRUGS (5)
  1. GENVOYA [Suspect]
     Active Substance: COBICISTAT\ELVITEGRAVIR\EMTRICITABINE\TENOFOVIR ALAFENAMIDE FUMARATE
     Indication: HIV INFECTION
     Dosage: 150 MG/150 MG/200 MG/10 MG, COMPRIM? PELLICUL?
     Route: 048
     Dates: start: 20171114, end: 20190521
  2. TRUVADA [Suspect]
     Active Substance: EMTRICITABINE\TENOFOVIR DISOPROXIL FUMARATE
     Indication: HIV INFECTION
     Dosage: INCONNUE, 200 MG/245 MG, COMPRIM? PELLICUL?
     Route: 048
     Dates: start: 20100420, end: 20171114
  3. PREZISTA [Suspect]
     Active Substance: DARUNAVIR ETHANOLATE
     Indication: HIV INFECTION
     Dosage: INCONNUE
     Route: 048
     Dates: start: 20100420, end: 20171114
  4. SEROPLEX [Suspect]
     Active Substance: ESCITALOPRAM OXALATE
     Indication: STRESS
     Dosage: 5 MG, COMPRIM? PELLICUL?
     Route: 048
  5. NORVIR [Suspect]
     Active Substance: RITONAVIR
     Indication: HIV INFECTION
     Dosage: INCONNUE
     Route: 048
     Dates: start: 20100420, end: 20171114

REACTIONS (2)
  - Osteonecrosis [Not Recovered/Not Resolved]
  - Groin pain [Not Recovered/Not Resolved]

NARRATIVE: CASE EVENT DATE: 201903
